FAERS Safety Report 19276030 (Version 4)
Quarter: 2021Q2

REPORT INFORMATION
  Report Type: Report from Study
  Country: US (occurrence: US)
  Receive Date: 20210519
  Receipt Date: 20210624
  Transmission Date: 20210717
  Serious: Yes (Other)
  Sender: FDA-Public Use
  Company Number: NVSC2021US102413

PATIENT
  Sex: Female

DRUGS (12)
  1. TABRECTA [Suspect]
     Active Substance: CAPMATINIB
     Indication: LUNG CANCER METASTATIC
     Dosage: 200 MG, BID
     Route: 048
     Dates: start: 20210325
  2. TABRECTA [Suspect]
     Active Substance: CAPMATINIB
     Route: 048
  3. BABY ASPIRIN [Concomitant]
     Active Substance: ASPIRIN
     Indication: PRODUCT USED FOR UNKNOWN INDICATION
     Route: 065
  4. AMBIEN [Concomitant]
     Active Substance: ZOLPIDEM TARTRATE
     Indication: PRODUCT USED FOR UNKNOWN INDICATION
     Route: 065
  5. LOVENOX [Concomitant]
     Active Substance: ENOXAPARIN SODIUM
     Indication: PRODUCT USED FOR UNKNOWN INDICATION
     Route: 065
  6. ZYRTEC [Concomitant]
     Active Substance: CETIRIZINE HYDROCHLORIDE
     Indication: PRODUCT USED FOR UNKNOWN INDICATION
     Route: 065
  7. AMLODIPINE BESYLATE. [Concomitant]
     Active Substance: AMLODIPINE BESYLATE
     Indication: PRODUCT USED FOR UNKNOWN INDICATION
     Route: 065
  8. MELATONIN [Concomitant]
     Active Substance: MELATONIN
     Indication: PRODUCT USED FOR UNKNOWN INDICATION
     Route: 065
  9. TABRECTA [Suspect]
     Active Substance: CAPMATINIB
     Dosage: 300 MG,BID
     Route: 048
  10. TABRECTA [Suspect]
     Active Substance: CAPMATINIB
     Dosage: 150 MG, BID
     Route: 048
  11. FAMOTIDINE. [Concomitant]
     Active Substance: FAMOTIDINE
     Indication: PRODUCT USED FOR UNKNOWN INDICATION
     Route: 065
  12. TABRECTA [Suspect]
     Active Substance: CAPMATINIB
     Dosage: 400 MG,BID
     Route: 048
     Dates: start: 20210326

REACTIONS (13)
  - Lung cancer metastatic [Not Recovered/Not Resolved]
  - Discomfort [Unknown]
  - Peripheral swelling [Recovering/Resolving]
  - Fatigue [Recovering/Resolving]
  - Product dose omission issue [Unknown]
  - Metastases to bone [Not Recovered/Not Resolved]
  - Liver function test increased [Unknown]
  - Pruritus [Recovering/Resolving]
  - Skin burning sensation [Unknown]
  - Emotional distress [Unknown]
  - Cough [Unknown]
  - Malignant neoplasm progression [Not Recovered/Not Resolved]
  - Oedema peripheral [Unknown]
